FAERS Safety Report 21411391 (Version 2)
Quarter: 2022Q4

REPORT INFORMATION
  Report Type: Spontaneous
  Country: JP (occurrence: JP)
  Receive Date: 20221005
  Receipt Date: 20221111
  Transmission Date: 20230113
  Serious: Yes (Life-Threatening, Hospitalization)
  Sender: FDA-Public Use
  Company Number: JP-PFIZER INC-PV202200075146

PATIENT
  Age: 79 Year
  Sex: Male
  Weight: 48 kg

DRUGS (5)
  1. BEVACIZUMAB [Suspect]
     Active Substance: BEVACIZUMAB
     Indication: Rectal cancer
     Dosage: 330 MG, 1X/DAY
     Route: 042
     Dates: start: 20220221, end: 20220720
  2. AVASTIN [Suspect]
     Active Substance: BEVACIZUMAB
     Indication: Rectal cancer
     Dosage: 430 MG, 1X/DAY
     Route: 042
     Dates: start: 20201116, end: 20201207
  3. ADENINE [Concomitant]
     Active Substance: ADENINE
     Dosage: UNK
     Route: 048
     Dates: start: 20220530
  4. LICKLE [Concomitant]
     Active Substance: ISOLEUCINE\LEUCINE\VALINE
     Dosage: UNK
     Route: 048
     Dates: start: 20210601
  5. CAPECITABINE [Concomitant]
     Active Substance: CAPECITABINE
     Dosage: UNK
     Route: 048
     Dates: start: 20201116

REACTIONS (1)
  - Duodenal perforation [Recovered/Resolved]

NARRATIVE: CASE EVENT DATE: 20220720
